FAERS Safety Report 8248357 (Version 6)
Quarter: 2012Q4

REPORT INFORMATION
  Report Type: Report from Study
  Country: DE (occurrence: DE)
  Receive Date: 20111117
  Receipt Date: 20120921
  Transmission Date: 20130627
  Serious: Yes (Other)
  Sender: FDA-Public Use
  Company Number: DE-UCBSA-045622

PATIENT
  Age: 40 Year
  Sex: Male
  Weight: 87 kg

DRUGS (28)
  1. CIMZIA [Suspect]
     Indication: RHEUMATOID ARTHRITIS
     Route: 058
     Dates: start: 20110217
  2. CIMZIA [Suspect]
     Indication: RHEUMATOID ARTHRITIS
     Route: 058
     Dates: start: 20110106, end: 20110210
  3. PREDNISOLONE [Concomitant]
     Indication: RHEUMATOID ARTHRITIS
     Route: 048
     Dates: start: 20110329
  4. PREDNISOLONE [Concomitant]
     Indication: RHEUMATOID ARTHRITIS
     Route: 048
     Dates: start: 20101108, end: 20110328
  5. SANDIMMUN OPT [Concomitant]
     Indication: SPONDYLITIS
     Route: 048
     Dates: start: 20110217, end: 20110328
  6. SANDIMMUN OPT [Concomitant]
     Indication: SPONDYLITIS
     Route: 048
     Dates: start: 20110329
  7. LODOTRA [Concomitant]
     Indication: RHEUMATOID ARTHRITIS
     Route: 048
     Dates: start: 20091229, end: 20110621
  8. LODOTRA [Concomitant]
     Indication: RHEUMATOID ARTHRITIS
     Route: 048
     Dates: start: 20110622, end: 20110704
  9. LODOTRA [Concomitant]
     Indication: RHEUMATOID ARTHRITIS
     Route: 048
     Dates: start: 20110705
  10. CA VIT D [Concomitant]
     Indication: PROPHYLAXIS
     Dosage: SINGLE DOSE/ DAILY DOSE: 1000MG/880 IE
     Route: 048
     Dates: start: 20070306, end: 20110425
  11. CA VIT D [Concomitant]
     Indication: OSTEOPOROSIS
     Dosage: SINGLE DOSE/ DAILY DOSE: 1000MG/880 IE
     Route: 048
     Dates: start: 20070306, end: 20110425
  12. HAMATOPHAN [Concomitant]
     Indication: IRON DEFICIENCY ANAEMIA
     Route: 048
     Dates: start: 20101215
  13. PANTOZOL [Concomitant]
     Indication: GASTRITIS PROPHYLAXIS
     Route: 048
     Dates: start: 20110103, end: 20110703
  14. PANTOZOL [Concomitant]
     Indication: GASTRITIS PROPHYLAXIS
     Route: 048
     Dates: start: 20110708
  15. ENTOCORT [Concomitant]
     Indication: COLITIS ULCERATIVE
     Route: 054
     Dates: start: 20110206
  16. CICLOSPORIN [Concomitant]
     Indication: RHEUMATOID ARTHRITIS
     Dates: start: 20110217, end: 20110327
  17. CICLOSPORIN [Concomitant]
     Indication: RHEUMATOID ARTHRITIS
     Dates: start: 20110328, end: 20110523
  18. CICLOSPORIN [Concomitant]
     Indication: RHEUMATOID ARTHRITIS
     Dosage: DAILY DOSE: 125 MG
     Dates: start: 20110524, end: 20110614
  19. CICLOSPORIN [Concomitant]
     Indication: RHEUMATOID ARTHRITIS
     Dates: start: 20110615, end: 20110620
  20. CICLOSPORIN [Concomitant]
     Indication: RHEUMATOID ARTHRITIS
     Dates: start: 20110621, end: 20110622
  21. CICLOSPORIN [Concomitant]
     Indication: RHEUMATOID ARTHRITIS
     Dates: start: 20110623, end: 20110625
  22. VIGANTOLETTEN [Concomitant]
     Indication: OSTEOPOROSIS PROPHYLAXIS
     Dates: start: 20070306
  23. VIGANTOLETTEN [Concomitant]
     Indication: OSTEOPOROSIS PROPHYLAXIS
     Dosage: DAILY DOSE: 1000 IE (500 IE BID)
     Dates: start: 20110426
  24. COLIFOAM [Concomitant]
     Indication: COLITIS
     Dosage: 1 TABLET TWICE A DAY
     Dates: start: 20110203, end: 20110714
  25. BUDESONIDE [Concomitant]
     Indication: COLITIS
     Dosage: 1 KE, AS NEEDED
     Dates: start: 20110217, end: 20110630
  26. BUDESONIDE [Concomitant]
     Indication: COLITIS
     Dates: start: 20110701
  27. EPOMAX [Concomitant]
     Indication: COLITIS
     Dates: start: 20110204
  28. KOHLE-TABLETTEN [Concomitant]
     Indication: COLITIS
     Dosage: 1 TABLET AS NECESSARY
     Dates: start: 20110223

REACTIONS (1)
  - Colitis ulcerative [Not Recovered/Not Resolved]
